FAERS Safety Report 25513169 (Version 1)
Quarter: 2025Q3

REPORT INFORMATION
  Report Type: Spontaneous
  Country: US (occurrence: US)
  Receive Date: 20250703
  Receipt Date: 20250703
  Transmission Date: 20251021
  Serious: No
  Sender: RADIUS PHARM
  Company Number: US-RADIUS HEALTH INC.-2024US005340

PATIENT
  Sex: Female
  Weight: 63.492 kg

DRUGS (1)
  1. TYMLOS [Suspect]
     Active Substance: ABALOPARATIDE
     Indication: Gastrointestinal disorder
     Route: 058

REACTIONS (2)
  - Therapy interrupted [Unknown]
  - Injection site bruising [Unknown]
